FAERS Safety Report 13120125 (Version 1)
Quarter: 2017Q1

REPORT INFORMATION
  Report Type: Spontaneous
  Country: FR (occurrence: FR)
  Receive Date: 20170117
  Receipt Date: 20170117
  Transmission Date: 20170428
  Serious: Yes (Other)
  Sender: FDA-Public Use
  Company Number: FR-ACCORD-047275

PATIENT
  Age: 50 Year
  Sex: Female

DRUGS (4)
  1. EPIRUBICIN MYLAN [Suspect]
     Active Substance: EPIRUBICIN
     Indication: INVASIVE DUCTAL BREAST CARCINOMA
     Dosage: FEC 100 PROTOCOL,??164 MG, 1 IN 3 WEEKS
     Route: 042
     Dates: start: 20141210, end: 20150122
  2. FLUOROURACIL ACCORD [Suspect]
     Active Substance: FLUOROURACIL
     Indication: INVASIVE DUCTAL BREAST CARCINOMA
     Dosage: FEC 100 PROTOCOL,??820 MG, 1 IN 3 WEEKS
     Route: 042
     Dates: start: 20141210, end: 20150122
  3. ENDOXAN [Suspect]
     Active Substance: CYCLOPHOSPHAMIDE
     Indication: INVASIVE DUCTAL BREAST CARCINOMA
     Dosage: FEC 100 PROTOCOL,??820 MG, 1 IN 3 WEEKS
     Route: 042
     Dates: start: 20141210, end: 20150122
  4. PACLITAXEL/PACLITAXEL LIPOSOME [Suspect]
     Active Substance: PACLITAXEL
     Indication: INVASIVE DUCTAL BREAST CARCINOMA
     Dosage: FEC 100 PROTOCOL,??131 MG, 11 IN 7 DAYS
     Route: 042
     Dates: start: 20150220, end: 20150410

REACTIONS (11)
  - Language disorder [Not Recovered/Not Resolved]
  - Executive dysfunction [None]
  - Memory impairment [Not Recovered/Not Resolved]
  - Carpal tunnel syndrome [Not Recovered/Not Resolved]
  - Cognitive disorder [None]
  - Axonal neuropathy [Not Recovered/Not Resolved]
  - Diplopia [Not Recovered/Not Resolved]
  - Confusional state [Not Recovered/Not Resolved]
  - External ear pain [Not Recovered/Not Resolved]
  - Atrophy [Not Recovered/Not Resolved]
  - Cerebral atrophy [None]

NARRATIVE: CASE EVENT DATE: 20150102
